FAERS Safety Report 6518225-8 (Version None)
Quarter: 2009Q4

REPORT INFORMATION
  Report Type: 
  Country: None (occurrence: None)
  Receive Date: 20091218
  Receipt Date: 20091211
  Transmission Date: 20100525
  Serious: Yes (Congenital Anomaly)
  Sender: FDA-Public Use
  Company Number: 2009-196969-NL

PATIENT

DRUGS (1)
  1. NUVARING [Suspect]
     Indication: DRUG EXPOSURE DURING PREGNANCY
     Dosage: TRPL
     Route: 064

REACTIONS (5)
  - CAESAREAN SECTION [None]
  - GASTROSCHISIS [None]
  - INTESTINAL DILATATION [None]
  - MATERNAL DRUGS AFFECTING FOETUS [None]
  - VOLVULUS OF SMALL BOWEL [None]
